FAERS Safety Report 11507409 (Version 1)
Quarter: 2015Q3

REPORT INFORMATION
  Report Type: Report from Study
  Country: AU (occurrence: AU)
  Receive Date: 20150915
  Receipt Date: 20150915
  Transmission Date: 20151125
  Serious: Yes (Hospitalization, Other)
  Sender: FDA-Public Use
  Company Number: AU-ASCEND THERAPEUTICS-1041945

PATIENT
  Age: 38 Year
  Sex: Female

DRUGS (1)
  1. ESTROGEL [Suspect]
     Active Substance: ESTRADIOL
     Indication: OVARIAN FAILURE
     Route: 062

REACTIONS (4)
  - Psychotic disorder [Recovering/Resolving]
  - Metrorrhagia [Unknown]
  - Menorrhagia [Unknown]
  - Rebound psychosis [Recovering/Resolving]
